FAERS Safety Report 5570666-1 (Version None)
Quarter: 2007Q4

REPORT INFORMATION
  Report Type: 
  Country: None (occurrence: None)
  Receive Date: 20071221
  Receipt Date: 20050927
  Transmission Date: 20080405
  Serious: Yes (Other)
  Sender: FDA-Public Use
  Company Number: GB-JNJFOC-20071201608

PATIENT
  Age: 45 Year
  Sex: Female
  Weight: 64 kg

DRUGS (4)
  1. HALOPERIDOL [Suspect]
     Indication: SCHIZOPHRENIA, PARANOID TYPE
     Route: 048
  2. ACE INHIBITORS [Concomitant]
     Route: 065
  3. INSULIN [Concomitant]
     Route: 065
  4. LIPID LOWERING THERAPY [Concomitant]
     Route: 065

REACTIONS (2)
  - EXTRAPYRAMIDAL DISORDER [None]
  - WEIGHT INCREASED [None]
